FAERS Safety Report 10178082 (Version 1)
Quarter: 2014Q2

REPORT INFORMATION
  Report Type: Spontaneous
  Country: AU (occurrence: AU)
  Receive Date: 20140518
  Receipt Date: 20140518
  Transmission Date: 20141212
  Serious: Yes (Hospitalization)
  Sender: FDA-Public Use
  Company Number: AU-009507513-1405AUS007176

PATIENT
  Sex: Male

DRUGS (2)
  1. RIBAVIRIN [Suspect]
     Route: 048
  2. PEGASYS [Suspect]
     Dosage: 180 DOSE UNSPECIFIED

REACTIONS (1)
  - Pulmonary mass [Unknown]
